FAERS Safety Report 8473634-5 (Version None)
Quarter: 2012Q2

REPORT INFORMATION
  Report Type: 
  Country: None (occurrence: None)
  Receive Date: 20120628
  Receipt Date: 20110725
  Transmission Date: 20120825
  Serious: Yes (Death)
  Sender: FDA-Public Use
  Company Number: US-MYLANLABS-2011S1015323

PATIENT
  Age: 48 Year
  Sex: Male

DRUGS (14)
  1. PREVACID [Concomitant]
  2. ABILIFY [Concomitant]
  3. NORVASC [Concomitant]
  4. MECLIZINE [Concomitant]
  5. PREDNISONE TAB [Concomitant]
  6. HYTRIN [Concomitant]
  7. CYMBALTA [Concomitant]
  8. TIMOLOL MALEATE [Concomitant]
     Route: 047
  9. CLOZAPINE [Suspect]
     Route: 048
     Dates: start: 20050407, end: 20110701
  10. KLONOPIN [Concomitant]
  11. CLONIDINE [Concomitant]
  12. TERBINAFINE HCL [Concomitant]
  13. BENTYL [Concomitant]
  14. METFORMIN HCL [Concomitant]

REACTIONS (1)
  - DEATH [None]
